FAERS Safety Report 18503403 (Version 1)
Quarter: 2020Q4

REPORT INFORMATION
  Report Type: Spontaneous
  Country: US (occurrence: US)
  Receive Date: 20201113
  Receipt Date: 20201113
  Transmission Date: 20210114
  Serious: Yes (Other)
  Sender: FDA-Public Use
  Company Number: US-PFIZER INC-2020445594

PATIENT
  Age: 30 Year
  Sex: Female

DRUGS (12)
  1. LORAZEPAM. [Suspect]
     Active Substance: LORAZEPAM
     Indication: ANTIDEPRESSANT THERAPY
     Dosage: UNK (DAY 0, UNKNOWN)
  2. ARIPIPRAZOLE. [Suspect]
     Active Substance: ARIPIPRAZOLE
     Dosage: UNK (WEEK 5-6, UNKNOWN)
  3. QUETIAPINE. [Suspect]
     Active Substance: QUETIAPINE
     Indication: PRODUCT USED FOR UNKNOWN INDICATION
     Dosage: UNK (DAY 4, UNKNOWN)
  4. LITHIUM ASPARTATE [Suspect]
     Active Substance: LITHIUM ASPARTATE
     Indication: ANTIDEPRESSANT THERAPY
     Dosage: UNK (DAY 7, UNKNOWN)
  5. BENZATROPINE [Suspect]
     Active Substance: BENZTROPINE
     Indication: ANTIDEPRESSANT THERAPY
     Dosage: UNK (DAY 7, UNKNOWN)
  6. ZIPRASIDONE HCL [Suspect]
     Active Substance: ZIPRASIDONE HYDROCHLORIDE
     Indication: ANTIDEPRESSANT THERAPY
     Dosage: UNK (DAY 0, UNKNOWN)
  7. ZULRESSO [Suspect]
     Active Substance: BREXANOLONE
     Indication: PERINATAL DEPRESSION
     Dosage: UNK
     Route: 042
  8. LORAZEPAM. [Suspect]
     Active Substance: LORAZEPAM
     Dosage: UNK (WEEK 5-6, UNKNOWN)
  9. VENLAFAXINE HCL [Suspect]
     Active Substance: VENLAFAXINE HYDROCHLORIDE
     Indication: ANTIDEPRESSANT THERAPY
     Dosage: UNK (DAY 0, UNKNOWN)
  10. ARIPIPRAZOLE. [Suspect]
     Active Substance: ARIPIPRAZOLE
     Indication: ANTIDEPRESSANT THERAPY
     Dosage: UNK (DAY 3, UNKNOWN)
  11. DOXEPIN HCL [Suspect]
     Active Substance: DOXEPIN HYDROCHLORIDE
     Indication: ANTIDEPRESSANT THERAPY
     Dosage: UNK (DAY 4, UNKNOWN)
  12. ARIPIPRAZOLE. [Suspect]
     Active Substance: ARIPIPRAZOLE
     Dosage: UNK (DAY 7, UNKNOWN)

REACTIONS (8)
  - Suicidal ideation [Recovered/Resolved]
  - Poor quality sleep [Unknown]
  - Emotional disorder [Unknown]
  - Depression [Unknown]
  - Tearfulness [Recovered/Resolved]
  - Anxiety [Unknown]
  - Feeling guilty [Unknown]
  - Decreased appetite [Unknown]
